FAERS Safety Report 6124156-8 (Version None)
Quarter: 2009Q1

REPORT INFORMATION
  Report Type: 
  Country: None (occurrence: None)
  Receive Date: 20090317
  Receipt Date: 20090206
  Transmission Date: 20090719
  Serious: Yes (Hospitalization)
  Sender: FDA-Public Use
  Company Number: KV200900167

PATIENT
  Age: 64 Year
  Sex: Female

DRUGS (3)
  1. METOPROLOL SUCCINATE [Suspect]
     Indication: HYPERTENSION
     Dosage: 50 MG, QD (HALF-TAB QHS), ORAL
     Route: 048
     Dates: start: 20080101
  2. QUINAPRIL HCL [Concomitant]
  3. SIMVASTATIN [Concomitant]

REACTIONS (5)
  - DIZZINESS [None]
  - FATIGUE [None]
  - INCREASED APPETITE [None]
  - IRRITABILITY [None]
  - LETHARGY [None]
